FAERS Safety Report 10886680 (Version 1)
Quarter: 2015Q1

REPORT INFORMATION
  Report Type: Spontaneous
  Country: US (occurrence: US)
  Receive Date: 20150304
  Receipt Date: 20150304
  Transmission Date: 20150721
  Serious: No
  Sender: FDA-Public Use
  Company Number: US-GLAXOSMITHKLINE-US2015016224

PATIENT
  Sex: Male

DRUGS (1)
  1. COREG [Suspect]
     Active Substance: CARVEDILOL
     Indication: CARDIAC FIBRILLATION

REACTIONS (2)
  - Off label use [Unknown]
  - Therapeutic response unexpected [Unknown]
